FAERS Safety Report 13565742 (Version 1)
Quarter: 2017Q2

REPORT INFORMATION
  Report Type: Spontaneous
  Country: US (occurrence: US)
  Receive Date: 20170520
  Receipt Date: 20170520
  Transmission Date: 20170830
  Serious: Yes (Hospitalization, Other)
  Sender: FDA-Public Use
  Company Number: US-ZYDUS-015165

PATIENT
  Age: 7 Decade
  Sex: Female

DRUGS (4)
  1. PREDNISONE. [Concomitant]
     Active Substance: PREDNISONE
     Indication: PRODUCT USED FOR UNKNOWN INDICATION
     Route: 065
  2. COLCHICINE. [Concomitant]
     Active Substance: COLCHICINE
     Indication: PRODUCT USED FOR UNKNOWN INDICATION
     Route: 065
  3. WARFARIN [Suspect]
     Active Substance: WARFARIN
     Indication: ATRIAL FIBRILLATION
     Route: 065
  4. METHOTREXATE. [Concomitant]
     Active Substance: METHOTREXATE
     Indication: PRODUCT USED FOR UNKNOWN INDICATION
     Route: 065

REACTIONS (9)
  - Calcification of muscle [Recovered/Resolved]
  - Ulcer [Recovered/Resolved]
  - Calcinosis [Recovered/Resolved]
  - Blood albumin decreased [Recovered/Resolved]
  - Livedo reticularis [Recovered/Resolved]
  - Purpura [Recovered/Resolved]
  - Skin plaque [Recovered/Resolved]
  - Fat necrosis [Recovered/Resolved]
  - Calciphylaxis [Recovered/Resolved]
